FAERS Safety Report 9437143 (Version 5)
Quarter: 2018Q1

REPORT INFORMATION
  Report Type: Report from Study
  Country: US (occurrence: US)
  Receive Date: 20130802
  Receipt Date: 20180125
  Transmission Date: 20180509
  Serious: Yes (Death, Life-Threatening)
  Sender: FDA-Public Use
  Company Number: US-JNJFOC-20130513748

PATIENT
  Age: 53 Year
  Sex: Male

DRUGS (13)
  1. TRAZODONE [Concomitant]
     Active Substance: TRAZODONE HYDROCHLORIDE
     Indication: SLEEP DISORDER THERAPY
     Dosage: 2 TABS AT EVENING
     Route: 065
     Dates: start: 20121206
  2. TRAZODONE [Concomitant]
     Active Substance: TRAZODONE HYDROCHLORIDE
     Indication: SLEEP DISORDER THERAPY
     Dosage: 2 TABS AT EVENING
     Route: 065
     Dates: start: 20130311
  3. LISINOPRIL. [Concomitant]
     Active Substance: LISINOPRIL
     Route: 048
     Dates: start: 20121206, end: 20130106
  4. TRAZODONE [Concomitant]
     Active Substance: TRAZODONE HYDROCHLORIDE
     Indication: SLEEP DISORDER THERAPY
     Dosage: 2 TABS AT EVENING
     Route: 065
     Dates: start: 20121217
  5. TRAZODONE [Concomitant]
     Active Substance: TRAZODONE HYDROCHLORIDE
     Indication: SLEEP DISORDER THERAPY
     Dosage: 2 TABS AT EVENING
     Route: 065
     Dates: start: 20130109
  6. BENZOTROPINE [Concomitant]
     Active Substance: BENZTROPINE
     Dosage: 1 TAB AT BEDTIME
     Route: 048
     Dates: start: 20121217
  7. RISPERDAL [Suspect]
     Active Substance: RISPERIDONE
     Indication: SCHIZOAFFECTIVE DISORDER
     Dosage: 2 TABLETS AT BED TIME
     Route: 048
     Dates: start: 20121217
  8. TRAZODONE [Concomitant]
     Active Substance: TRAZODONE HYDROCHLORIDE
     Indication: SLEEP DISORDER THERAPY
     Dosage: 2 TABS AT EVENING
     Route: 065
     Dates: start: 20130516
  9. RISPERDAL CONSTA [Suspect]
     Active Substance: RISPERIDONE
     Indication: SCHIZOAFFECTIVE DISORDER
     Route: 030
     Dates: start: 20121211, end: 20130603
  10. RISPERDAL [Suspect]
     Active Substance: RISPERIDONE
     Indication: SCHIZOAFFECTIVE DISORDER
     Route: 048
     Dates: start: 20121206, end: 201212
  11. BENZOTROPINE [Concomitant]
     Active Substance: BENZTROPINE
     Dosage: 1 TAB AT BEDTIME
     Route: 048
     Dates: start: 20130306
  12. BENZOTROPINE [Concomitant]
     Active Substance: BENZTROPINE
     Dosage: 1 TAB AT BEDTIME
     Route: 048
     Dates: start: 20121206
  13. BENZOTROPINE [Concomitant]
     Active Substance: BENZTROPINE
     Dosage: 1 TAB AT BEDTIME
     Route: 048
     Dates: start: 20130516

REACTIONS (7)
  - Inappropriate schedule of drug administration [Unknown]
  - Agitation [Not Recovered/Not Resolved]
  - Aggression [Unknown]
  - Condition aggravated [Not Recovered/Not Resolved]
  - Irritability [Not Recovered/Not Resolved]
  - Malaise [Unknown]
  - Victim of homicide [Fatal]

NARRATIVE: CASE EVENT DATE: 20130520
